FAERS Safety Report 7725355-1 (Version None)
Quarter: 2011Q3

REPORT INFORMATION
  Report Type: 
  Country: None (occurrence: None)
  Receive Date: 20110902
  Receipt Date: 20060316
  Transmission Date: 20111222
  Serious: Yes (Hospitalization)
  Sender: FDA-Public Use
  Company Number: BR-RANBAXY-2006R5-46487

PATIENT

DRUGS (1)
  1. CEFUROXIME AXETIL [Suspect]
     Indication: PRODUCT USED FOR UNKNOWN INDICATION
     Dosage: UNK
     Route: 048
     Dates: start: 20060222, end: 20060304

REACTIONS (3)
  - BRONCHOPNEUMONIA [None]
  - BRONCHOSPASM [None]
  - PLEURAL EFFUSION [None]
